FAERS Safety Report 12557236 (Version 3)
Quarter: 2016Q3

REPORT INFORMATION
  Report Type: Spontaneous
  Country: CN (occurrence: CN)
  Receive Date: 20160714
  Receipt Date: 20160727
  Transmission Date: 20161109
  Serious: Yes (Death, Life-Threatening)
  Sender: FDA-Public Use
  Company Number: CN-ASTRAZENECA-2016SE74908

PATIENT
  Age: 71 Year
  Sex: Female
  Weight: 38 kg

DRUGS (2)
  1. PULMICORT RESPULES [Suspect]
     Active Substance: BUDESONIDE
     Indication: CHRONIC OBSTRUCTIVE PULMONARY DISEASE
     Dosage: 1.0MG UNKNOWN
     Route: 055
     Dates: start: 20160618
  2. TERBUTALINE [Concomitant]
     Active Substance: TERBUTALINE
     Indication: CHRONIC OBSTRUCTIVE PULMONARY DISEASE
     Dosage: 0.5MG UNKNOWN
     Route: 051
     Dates: start: 20160618

REACTIONS (2)
  - Chronic obstructive pulmonary disease [Fatal]
  - Loss of consciousness [Unknown]

NARRATIVE: CASE EVENT DATE: 201606
